FAERS Safety Report 10667669 (Version 1)
Quarter: 2014Q4

REPORT INFORMATION
  Report Type: Spontaneous
  Country: FI (occurrence: FI)
  Receive Date: 20141222
  Receipt Date: 20141222
  Transmission Date: 20150529
  Serious: Yes (Hospitalization, Other)
  Sender: FDA-Public Use
  Company Number: FI-BANPHARM-20143297

PATIENT
  Age: 25 Year
  Sex: Female

DRUGS (3)
  1. FOSPHENYTOIN [Concomitant]
     Active Substance: FOSPHENYTOIN\FOSPHENYTOIN SODIUM
  2. VALPROIC ACID UNKNOWN PRODUCT [Suspect]
     Active Substance: VALPROIC ACID
     Indication: EPILEPSY
     Route: 048
  3. CLONAZEPAM. [Concomitant]
     Active Substance: CLONAZEPAM

REACTIONS (11)
  - Metabolic encephalopathy [Recovered/Resolved]
  - Liver transplant [None]
  - Ataxia [None]
  - Epilepsy [None]
  - Ascites [Recovered/Resolved]
  - Hepatic failure [Recovered/Resolved]
  - Psychomotor retardation [None]
  - Transplant rejection [None]
  - Panic disorder [None]
  - Chills [None]
  - Nystagmus [None]
